FAERS Safety Report 4542964-1 (Version None)
Quarter: 2004Q4

REPORT INFORMATION
  Report Type: 
  Country: None (occurrence: None)
  Receive Date: 20041229
  Receipt Date: 20041220
  Transmission Date: 20050328
  Serious: Yes (Other)
  Sender: FDA-Public Use
  Company Number: 163-20785-04120529

PATIENT
  Age: 72 Year
  Sex: Female

DRUGS (1)
  1. THALOMID [Suspect]
     Indication: MULTIPLE MYELOMA
     Dosage: QD ORAL
     Route: 048

REACTIONS (4)
  - DISEASE PROGRESSION [None]
  - INFECTION [None]
  - LEG AMPUTATION [None]
  - RASH [None]
